FAERS Safety Report 5913635-1 (Version None)
Quarter: 2008Q4

REPORT INFORMATION
  Report Type: 
  Country: None (occurrence: None)
  Receive Date: 20081009
  Receipt Date: 20081001
  Transmission Date: 20090506
  Serious: Yes (Hospitalization, Other)
  Sender: FDA-Public Use
  Company Number: US-ROCHE-588944

PATIENT
  Age: 67 Year
  Sex: Female

DRUGS (8)
  1. BONIVA [Suspect]
     Indication: OSTEOPOROSIS
     Route: 048
     Dates: start: 20080301
  2. PRILOSEC [Concomitant]
  3. ENBREL [Concomitant]
  4. METHOTREXATE SODIUM [Concomitant]
  5. PLAQUENIL [Concomitant]
  6. FOLIC ACID [Concomitant]
  7. IRON SUPPLEMENT [Concomitant]
  8. CALCIUM/VITAMIN D [Concomitant]
     Dosage: DOSE: CALCIUM WITH VITAMIN D

REACTIONS (2)
  - BONE DISORDER [None]
  - DYSPHAGIA [None]
